FAERS Safety Report 7276296-8 (Version None)
Quarter: 2011Q1

REPORT INFORMATION
  Report Type: 
  Country: None (occurrence: None)
  Receive Date: 20110204
  Receipt Date: 20110126
  Transmission Date: 20110831
  Serious: Yes (Other)
  Sender: FDA-Public Use
  Company Number: US-JNJCH-2011002648

PATIENT

DRUGS (1)
  1. EXTRA STRENGTH ROLAIDS SOFTCHEWS WILD CHERRY [Suspect]
     Indication: DRUG EXPOSURE DURING PREGNANCY
     Dosage: TEXT:1 TO 3 SOFTCHEWS TWICE A WEEK
     Route: 064
     Dates: start: 20101201, end: 20110124

REACTIONS (3)
  - FOETAL CARDIAC DISORDER [None]
  - DRUG EXPOSURE DURING PREGNANCY [None]
  - PRODUCT QUALITY ISSUE [None]
